FAERS Safety Report 25787259 (Version 2)
Quarter: 2025Q4

REPORT INFORMATION
  Report Type: Spontaneous
  Country: US (occurrence: US)
  Receive Date: 20250910
  Receipt Date: 20251001
  Transmission Date: 20260118
  Serious: Yes (Hospitalization, Other)
  Sender: OPKO HEALTH
  Company Number: US-OPKO PHARMACEUTICALS, LLC.-2025OPK00143

PATIENT
  Sex: Male

DRUGS (1)
  1. RAYALDEE [Suspect]
     Active Substance: CALCIFEDIOL
     Dosage: UNK
     Dates: start: 20241004

REACTIONS (9)
  - Respiratory symptom [Unknown]
  - Cough [Unknown]
  - Lacrimation increased [Unknown]
  - Cardiac failure congestive [Unknown]
  - Left ventricular dysfunction [Unknown]
  - Catheterisation cardiac [Unknown]
  - Dyspnoea [Unknown]
  - Pericardial effusion [Unknown]
  - Myocardial infarction [Unknown]
